FAERS Safety Report 6616022-6 (Version None)
Quarter: 2010Q1

REPORT INFORMATION
  Report Type: 
  Country: None (occurrence: None)
  Receive Date: 20100305
  Receipt Date: 20100224
  Transmission Date: 20100710
  Serious: Yes (Hospitalization, Other)
  Sender: FDA-Public Use
  Company Number: B0635483A

PATIENT
  Sex: Male

DRUGS (13)
  1. REQUIP [Suspect]
     Indication: PARKINSON'S DISEASE
     Dosage: 2MG FIVE TIMES PER DAY
     Route: 065
  2. ARICEPT [Suspect]
     Dosage: 10MG PER DAY
     Route: 048
     Dates: start: 20090825, end: 20090826
  3. ELDEPRYL [Suspect]
     Indication: PARKINSON'S DISEASE
     Dosage: 10MG PER DAY
     Route: 048
  4. MADOPAR [Suspect]
     Indication: PARKINSON'S DISEASE
     Route: 048
  5. MADOPAR DEPOT [Suspect]
     Indication: PARKINSON'S DISEASE
     Dosage: 1CAP AT NIGHT
     Route: 048
  6. SOMAC [Concomitant]
     Dosage: 40MG PER DAY
  7. SEROQUEL [Concomitant]
     Dosage: 25MG PER DAY
     Route: 048
  8. BRONKYL [Concomitant]
     Dosage: 200MG PER DAY
     Route: 048
  9. CETIRIZINE [Concomitant]
     Dosage: 10MG PER DAY
  10. FLAGYL [Concomitant]
     Dosage: 400MG THREE TIMES PER DAY
     Dates: end: 20090809
  11. CALCIGRAN FORTE [Concomitant]
     Dosage: 2U PER DAY
     Route: 048
  12. TRIOBE [Concomitant]
     Dosage: 1U PER DAY
     Route: 048
  13. ORFIRIL [Concomitant]
     Dosage: 150MG TWICE PER DAY
     Route: 048

REACTIONS (3)
  - COLD SWEAT [None]
  - HYPERHIDROSIS [None]
  - UNRESPONSIVE TO STIMULI [None]
